FAERS Safety Report 4384506-X (Version None)
Quarter: 2004Q2

REPORT INFORMATION
  Report Type: 
  Country: None (occurrence: None)
  Receive Date: 20040610
  Receipt Date: 20040430
  Transmission Date: 20050107
  Serious: Yes (Hospitalization)
  Sender: FDA-Public Use
  Company Number: F03200400039

PATIENT
  Age: 63 Year
  Sex: Female
  Weight: 49.5 kg

DRUGS (9)
  1. ELOXATIN [Suspect]
     Indication: RECTAL CANCER
     Dosage: 72 MG/1 WEEK - INTRAVENOUS NOS
     Route: 042
     Dates: start: 20040420, end: 20040420
  2. CAPECITABINE - 1150 MG [Suspect]
     Indication: RECTAL CANCER
     Dosage: 1150 MG BID - ORAL
     Route: 048
     Dates: start: 20040323, end: 20040423
  3. ALENDRONATE SODIUM [Concomitant]
  4. LISINOPRIL [Concomitant]
  5. HYDROCHLOROTHIAZIDE [Concomitant]
  6. IRON SULFATETHIAMIN COMPOUND TAB [Concomitant]
  7. MULTI-VITAMINS [Concomitant]
  8. ALPRAZOLAM [Concomitant]
  9. CALCIUM [Concomitant]

REACTIONS (2)
  - DIARRHOEA [None]
  - HYPONATRAEMIA [None]
